FAERS Safety Report 9032372 (Version 2)
Quarter: 2013Q1

REPORT INFORMATION
  Report Type: Spontaneous
  Country: US (occurrence: US)
  Receive Date: 20130125
  Receipt Date: 20130215
  Transmission Date: 20140127
  Serious: Yes (Hospitalization)
  Sender: FDA-Public Use
  Company Number: US-MYLANLABS-2013S1001125

PATIENT
  Age: 73 Year
  Sex: Female
  Weight: 168.74 kg

DRUGS (3)
  1. FENTANYL TRANSDERMAL SYSTEM [Suspect]
     Indication: BACK PAIN
     Dosage: Q72HR
     Route: 062
     Dates: start: 201109
  2. FENTANYL TRANSDERMAL SYSTEM [Suspect]
     Indication: BACK PAIN
     Dosage: Q72H THEN TO Q48H
     Route: 062
     Dates: start: 201109
  3. HYDROCODONE [Concomitant]
     Indication: PAIN

REACTIONS (4)
  - Drug effect decreased [Recovered/Resolved]
  - Pain [Recovered/Resolved]
  - Cystitis [Recovered/Resolved]
  - Dehydration [Recovered/Resolved]
